FAERS Safety Report 20908753 (Version 4)
Quarter: 2022Q3

REPORT INFORMATION
  Report Type: Spontaneous
  Country: JP (occurrence: JP)
  Receive Date: 20220603
  Receipt Date: 20220927
  Transmission Date: 20221027
  Serious: Yes (Hospitalization, Other)
  Sender: FDA-Public Use
  Company Number: JP-BRISTOL-MYERS SQUIBB COMPANY-2022-051774

PATIENT
  Age: 8 Decade
  Sex: Male

DRUGS (3)
  1. VIDAZA [Suspect]
     Active Substance: AZACITIDINE
     Indication: Acute myeloid leukaemia
     Route: 065
     Dates: start: 20211208, end: 20220711
  2. VIDAZA [Suspect]
     Active Substance: AZACITIDINE
  3. VENETOCLAX [Concomitant]
     Active Substance: VENETOCLAX
     Indication: Product used for unknown indication
     Route: 065

REACTIONS (2)
  - Cytopenia [Not Recovered/Not Resolved]
  - Myelofibrosis [Not Recovered/Not Resolved]

NARRATIVE: CASE EVENT DATE: 20220201
